FAERS Safety Report 18096113 (Version 1)
Quarter: 2020Q3

REPORT INFORMATION
  Report Type: Spontaneous
  Country: None (occurrence: US)
  Receive Date: 20200730
  Receipt Date: 20200730
  Transmission Date: 20201103
  Serious: No
  Sender: FDA-Public Use
  Company Number: US-MIKART, LLC-2087960

PATIENT

DRUGS (1)
  1. BUTALBITAL AND ACETAMINOPHEN [Suspect]
     Active Substance: ACETAMINOPHEN\BUTALBITAL
     Indication: HEADACHE
     Route: 048

REACTIONS (1)
  - Drug ineffective [Unknown]
